FAERS Safety Report 7008050-6 (Version None)
Quarter: 2010Q3

REPORT INFORMATION
  Report Type: 
  Country: None (occurrence: None)
  Receive Date: 20100922
  Receipt Date: 20100917
  Transmission Date: 20110219
  Serious: No
  Sender: FDA-Public Use
  Company Number: US-CEPHALON-2010004995

PATIENT
  Sex: Male

DRUGS (14)
  1. FENTORA [Suspect]
     Indication: COMPLEX REGIONAL PAIN SYNDROME
     Route: 002
     Dates: start: 20100101
  2. DILAUDID [Concomitant]
     Route: 037
  3. BUPACINE [Concomitant]
     Route: 037
  4. TRAZODONE HCL [Concomitant]
     Indication: SLEEP DISORDER
  5. PROTONIX [Concomitant]
     Indication: GASTROOESOPHAGEAL REFLUX DISEASE
  6. LEVOTHYROXINE SODIUM [Concomitant]
     Indication: THYROID DISORDER
  7. SUCRALFATE [Concomitant]
     Indication: GASTROOESOPHAGEAL REFLUX DISEASE
  8. RITALIN [Concomitant]
     Indication: SOMNOLENCE
  9. BENICAR [Concomitant]
     Indication: BLOOD PRESSURE
  10. CREON [Concomitant]
     Indication: PANCREATITIS
     Dates: start: 20080101
  11. GEMFIBROZIL [Concomitant]
     Indication: BLOOD CHOLESTEROL
  12. TESTOSTERONE [Concomitant]
     Indication: BLOOD TESTOSTERONE DECREASED
  13. LOVAZA [Concomitant]
     Indication: BLOOD CHOLESTEROL
  14. BOTOX [Concomitant]

REACTIONS (2)
  - DRUG INEFFECTIVE FOR UNAPPROVED INDICATION [None]
  - POOR QUALITY DRUG ADMINISTERED [None]
